FAERS Safety Report 9808067 (Version 2)
Quarter: 2014Q2

REPORT INFORMATION
  Report Type: Spontaneous
  Country: MX (occurrence: MX)
  Receive Date: 20140110
  Receipt Date: 20140521
  Transmission Date: 20141212
  Serious: No
  Sender: FDA-Public Use
  Company Number: MX-GLAXOSMITHKLINE-A1056066A

PATIENT
  Age: 79 Year
  Sex: Male

DRUGS (5)
  1. AROPAX [Suspect]
     Indication: PRODUCT USED FOR UNKNOWN INDICATION
     Dosage: 20MG PER DAY
     Route: 048
     Dates: start: 201101
  2. EUTIROX [Concomitant]
  3. INDERAL [Concomitant]
  4. ASPIRIN PROTECT [Concomitant]
  5. UNKNOWN [Concomitant]

REACTIONS (2)
  - Drug administration error [Not Recovered/Not Resolved]
  - Off label use [Not Recovered/Not Resolved]
